FAERS Safety Report 4332850-4 (Version None)
Quarter: 2004Q1

REPORT INFORMATION
  Report Type: 
  Country: None (occurrence: None)
  Receive Date: 20040330
  Receipt Date: 20040319
  Transmission Date: 20041129
  Serious: Yes (Death, Hospitalization)
  Sender: FDA-Public Use
  Company Number: F03200400026

PATIENT
  Age: 63 Year
  Sex: Female

DRUGS (4)
  1. ELOXATIN [Suspect]
     Indication: COLON CANCER
     Dosage: 65 MG/SQUARE METER 1/1 CYCLE - INTRAVENOUS NOS
     Route: 042
     Dates: start: 20030916, end: 20030916
  2. CETUXIMAB - SOLUTION [Suspect]
     Indication: COLON CANCER
     Dosage: 250 MG/SQUARE METER 1/1 CYCLE - INTRAVENOUS NOS
     Route: 042
     Dates: start: 20030916, end: 20030916
  3. FLUOROURACIL [Suspect]
     Indication: COLON CANCER
     Dosage: 300 MG/SQUARE METER 2/1 CYCLE - INTRAVENOUS NOS
     Route: 042
     Dates: start: 20030902, end: 20030904
  4. LEUCOVORIN CALCIUM [Suspect]
     Indication: COLON CANCER
     Dosage: 500 MG/SQUARE METER 2/1 CYCLE - INTRAVENOUS NOS
     Route: 042
     Dates: start: 20030902, end: 20030904

REACTIONS (20)
  - CACHEXIA [None]
  - CATHETER RELATED COMPLICATION [None]
  - COLORECTAL CANCER [None]
  - DYSPNOEA [None]
  - INFARCTION [None]
  - INTERSTITIAL LUNG DISEASE [None]
  - MALIGNANT NEOPLASM PROGRESSION [None]
  - METASTASES TO LUNG [None]
  - NEUTROPHIL COUNT DECREASED [None]
  - OVARIAN ADENOMA [None]
  - PALPITATIONS [None]
  - PNEUMONIA [None]
  - PNEUMONITIS [None]
  - PULMONARY FIBROSIS [None]
  - PULMONARY HYPERTENSION [None]
  - RENAL INFARCT [None]
  - RESPIRATORY DISTRESS [None]
  - SPLEEN DISORDER [None]
  - VENTRICULAR HYPERTROPHY [None]
  - WHITE BLOOD CELL COUNT INCREASED [None]
